FAERS Safety Report 7137629-6 (Version None)
Quarter: 2010Q4

REPORT INFORMATION
  Report Type: 
  Country: None (occurrence: None)
  Receive Date: 20101206
  Receipt Date: 20101126
  Transmission Date: 20110411
  Serious: Yes (Other)
  Sender: FDA-Public Use
  Company Number: IT-MPIJNJ-2010-05961

PATIENT

DRUGS (3)
  1. VELCADE [Suspect]
     Indication: MULTIPLE MYELOMA
     Dosage: 2.2 MG, CYCLIC
     Route: 042
     Dates: start: 20101019, end: 20101125
  2. ENDOXAN                            /00021101/ [Suspect]
     Indication: MULTIPLE MYELOMA
     Dosage: 1260 MG, CYCLIC
     Route: 042
     Dates: start: 20101019, end: 20101125
  3. DEXAMETHASONE [Concomitant]
     Indication: MULTIPLE MYELOMA
     Dosage: 40 MG, UNK
     Route: 042
     Dates: start: 20101019, end: 20101125

REACTIONS (1)
  - ERYTHEMA MULTIFORME [None]
